FAERS Safety Report 9417111 (Version 1)
Quarter: 2013Q3

REPORT INFORMATION
  Report Type: Spontaneous
  Country: GB (occurrence: None)
  Receive Date: 20130722
  Receipt Date: 20130722
  Transmission Date: 20140515
  Serious: Yes (Other)
  Sender: FDA-Public Use
  Company Number: HRA-MET20130039

PATIENT
  Sex: 0

DRUGS (1)
  1. METYRAPONE [Suspect]
     Indication: CUSHING^S SYNDROME
     Dosage: 2000 MG ( 500 MG, 4 IN 1 D)

REACTIONS (1)
  - Herpes zoster [None]
